FAERS Safety Report 9802530 (Version 2)
Quarter: 2014Q1

REPORT INFORMATION
  Report Type: Spontaneous
  Country: US (occurrence: US)
  Receive Date: 20140107
  Receipt Date: 20140123
  Transmission Date: 20141002
  Serious: Yes (Death, Other)
  Sender: FDA-Public Use
  Company Number: US-AMGEN-USASP2014000739

PATIENT
  Age: 55 Year
  Sex: Female

DRUGS (6)
  1. PROCRIT [Suspect]
     Indication: PRODUCT USED FOR UNKNOWN INDICATION
     Dosage: UNK
     Route: 065
  2. RENVELA [Concomitant]
     Dosage: 800 MG, TID
  3. CLONIDINE [Concomitant]
     Indication: HYPERTENSION
     Dosage: 0.1 MG, QD
  4. HYDRALAZINE                        /00007602/ [Concomitant]
     Indication: HYPERTENSION
     Dosage: 100 MG, BID
  5. AMLODIPINE [Concomitant]
     Indication: HYPERTENSION
     Dosage: 5 MG, UNK
  6. METOPROLOL TARTRATE [Concomitant]
     Indication: HYPERTENSION
     Dosage: 25 MG, BID

REACTIONS (3)
  - Nephritis [Unknown]
  - Arteritis [Unknown]
  - General physical health deterioration [Fatal]
